FAERS Safety Report 9240119 (Version 1)
Quarter: 2013Q2

REPORT INFORMATION
  Report Type: Spontaneous
  Country: US (occurrence: None)
  Receive Date: 20130418
  Receipt Date: 20130418
  Transmission Date: 20140414
  Serious: Yes (Life-Threatening, Other)
  Sender: FDA-Public Use
  Company Number: None

PATIENT
  Age: 71 Year
  Sex: Female
  Weight: 118.2 kg

DRUGS (1)
  1. Z PACK ZITHROMAX [Suspect]
     Indication: PNEUMONIA
     Dates: start: 201302

REACTIONS (3)
  - Heart rate irregular [None]
  - Atrial fibrillation [None]
  - Dyspnoea [None]
